FAERS Safety Report 4310840-5 (Version None)
Quarter: 2004Q1

REPORT INFORMATION
  Report Type: 
  Country: None (occurrence: None)
  Receive Date: 20040303
  Receipt Date: 20040220
  Transmission Date: 20041129
  Serious: Yes (Hospitalization, Other)
  Sender: FDA-Public Use
  Company Number: US-JNJFOC-20031006131

PATIENT
  Age: 70 Year
  Weight: 63.5036 kg

DRUGS (4)
  1. REMICADE [Suspect]
     Indication: RHEUMATOID ARTHRITIS
     Dosage: 5 MG/KG, 1 IN 1 DAY, INTRAVENOUS
     Route: 042
     Dates: start: 20000713, end: 20030201
  2. METHOTREXATE [Concomitant]
  3. FOSAMAX [Concomitant]
  4. CELEBREX [Concomitant]

REACTIONS (7)
  - ATRIAL FIBRILLATION [None]
  - CARDIAC FAILURE CONGESTIVE [None]
  - DECREASED APPETITE [None]
  - DYSPNOEA EXERTIONAL [None]
  - LUPUS-LIKE SYNDROME [None]
  - PLEURAL EFFUSION [None]
  - WEIGHT DECREASED [None]
